FAERS Safety Report 8615641-5 (Version None)
Quarter: 2012Q3

REPORT INFORMATION
  Report Type: 
  Country: None (occurrence: None)
  Receive Date: 20120823
  Receipt Date: 20120815
  Transmission Date: 20120928
  Serious: Yes (Hospitalization, Other)
  Sender: FDA-Public Use
  Company Number: VE-JNJFOC-20120811188

PATIENT
  Age: 48 Year
  Sex: Male

DRUGS (1)
  1. XARELTO [Suspect]
     Indication: FEMUR FRACTURE
     Route: 048
     Dates: start: 20120423, end: 20120430

REACTIONS (1)
  - PULMONARY EMBOLISM [None]
